FAERS Safety Report 13227848 (Version 2)
Quarter: 2017Q1

REPORT INFORMATION
  Report Type: Spontaneous
  Country: US (occurrence: US)
  Receive Date: 20170213
  Receipt Date: 20170324
  Transmission Date: 20170428
  Serious: Yes (Hospitalization)
  Sender: FDA-Public Use
  Company Number: US-PFIZER INC-2017056509

PATIENT
  Age: 80 Year
  Sex: Male
  Weight: 86 kg

DRUGS (7)
  1. VIAGRA [Suspect]
     Active Substance: SILDENAFIL CITRATE
     Indication: ERECTILE DYSFUNCTION
     Dosage: 100 UNK, UNK
  2. VIAGRA [Suspect]
     Active Substance: SILDENAFIL CITRATE
     Dosage: 50 MG, 1X/DAY (50 MG TABLET ABOUT 5 PM )
     Dates: start: 20170217
  3. VIAGRA [Suspect]
     Active Substance: SILDENAFIL CITRATE
     Dosage: 50 MG, 1X/DAY (AT ABOUT 6 PM; CUT THE LAST 100 MG VIAGRA IN HALF AND TOOK )
     Dates: start: 20170227
  4. L-ARGININE /00126101/ [Concomitant]
     Active Substance: ARGININE
     Indication: ERECTILE DYSFUNCTION
     Dosage: 1 SCOOP OF 12.7GRAMS OF POWDER, 5110MG L-ARGININE AND 1010MG L-CITRULLINE WITH RED WINE EXTRACT
  5. VIAGRA [Suspect]
     Active Substance: SILDENAFIL CITRATE
     Dosage: 100 MG, UNK
     Dates: start: 20170203
  6. VIAGRA [Suspect]
     Active Substance: SILDENAFIL CITRATE
     Dosage: 100 MG, DAILY (CUT A 100MG TABLET IN HALF OTHER HALF SO I TOOK THE OTHER HALF)
     Dates: start: 20170206
  7. VIAGRA [Suspect]
     Active Substance: SILDENAFIL CITRATE
     Dosage: 50 MG, DAILY (SECOND HALF OF MY 100MG VIAGRA TABLET)
     Dates: start: 20170303

REACTIONS (7)
  - Drug ineffective [Unknown]
  - Condition aggravated [Unknown]
  - Drug effect delayed [Unknown]
  - Abdominal discomfort [Recovered/Resolved]
  - Sinus headache [Unknown]
  - Paranasal sinus hypersecretion [Unknown]
  - Sinus disorder [Unknown]

NARRATIVE: CASE EVENT DATE: 20170203
